FAERS Safety Report 4947242-4 (Version None)
Quarter: 2006Q1

REPORT INFORMATION
  Report Type: 
  Country: None (occurrence: None)
  Receive Date: 20060314
  Receipt Date: 20060227
  Transmission Date: 20060701
  Serious: Yes (Other)
  Sender: FDA-Public Use
  Company Number: 2006S1000481

PATIENT
  Age: 68 Year
  Sex: Male
  Weight: 63.5036 kg

DRUGS (7)
  1. FENTANYL TRANSDERMAL SYSTEM [Suspect]
     Indication: ARTHRALGIA
     Dosage: 25 UG/HR;Q3D; TRANS
     Route: 062
     Dates: start: 20051021, end: 20060112
  2. FENTANYL TRANSDERMAL SYSTEM [Suspect]
     Indication: KNEE ARTHROPLASTY
     Dosage: 25 UG/HR;Q3D; TRANS
     Route: 062
     Dates: start: 20051021, end: 20060112
  3. FENTANYL TRANSDERMAL SYSTEM [Suspect]
     Indication: ARTHRALGIA
     Dosage: 100 UG/HR;Q3D;TRANS
     Route: 062
     Dates: start: 20050518, end: 20051118
  4. FENTANYL TRANSDERMAL SYSTEM [Suspect]
     Indication: KNEE ARTHROPLASTY
     Dosage: 100 UG/HR;Q3D;TRANS
     Route: 062
     Dates: start: 20050518, end: 20051118
  5. FENTANYL TRANSDERMAL SYSTEM [Suspect]
     Indication: ARTHRALGIA
     Dosage: 100 UG/HR;Q3D;TRANS
     Route: 062
     Dates: start: 20051119, end: 20060112
  6. FENTANYL TRANSDERMAL SYSTEM [Suspect]
     Indication: KNEE ARTHROPLASTY
     Dosage: 100 UG/HR;Q3D;TRANS
     Route: 062
     Dates: start: 20051119, end: 20060112
  7. RABEPRAZOLE SODIUM [Concomitant]

REACTIONS (8)
  - ABDOMINAL PAIN [None]
  - DRUG INEFFECTIVE [None]
  - DRUG WITHDRAWAL SYNDROME [None]
  - HYPERHIDROSIS [None]
  - MUSCLE SPASMS [None]
  - PHARMACEUTICAL PRODUCT COMPLAINT [None]
  - PRURITUS [None]
  - TREATMENT NONCOMPLIANCE [None]
